FAERS Safety Report 16576621 (Version 1)
Quarter: 2019Q3

REPORT INFORMATION
  Report Type: Spontaneous
  Country: US (occurrence: US)
  Receive Date: 20190715
  Receipt Date: 20190715
  Transmission Date: 20191004
  Serious: Yes (Disabling)
  Sender: FDA-Public Use
  Company Number: None

PATIENT
  Age: 50 Year
  Sex: Female
  Weight: 72 kg

DRUGS (13)
  1. ZYRTEC [Concomitant]
     Active Substance: CETIRIZINE HYDROCHLORIDE
  2. BP PILL [Concomitant]
  3. MELATONIN [Concomitant]
     Active Substance: MELATONIN
  4. MULTIVITAMIN [Concomitant]
     Active Substance: VITAMINS
  5. XYZAL [Concomitant]
     Active Substance: LEVOCETIRIZINE DIHYDROCHLORIDE
  6. AMBIEN CR 12.5 MG [Concomitant]
  7. BIOTIN [Concomitant]
     Active Substance: BIOTIN
  8. VITAMIN D 5000 MG [Concomitant]
  9. AJOVY [Suspect]
     Active Substance: FREMANEZUMAB-VFRM
     Indication: MIGRAINE
     Dosage: ?          QUANTITY:1 INJECTION(S);OTHER FREQUENCY:30 DAYS;?
     Route: 058
     Dates: start: 20190622, end: 20190710
  10. FIBER GUMMIES [Concomitant]
  11. WELLBUTRIN XL [Concomitant]
     Active Substance: BUPROPION HYDROCHLORIDE
  12. GLUCOSIMINE CHONDROITIN [Concomitant]
  13. LAMICTAL [Concomitant]
     Active Substance: LAMOTRIGINE

REACTIONS (6)
  - Neck pain [None]
  - Weight increased [None]
  - Joint swelling [None]
  - Alopecia [None]
  - Arthropathy [None]
  - Arthralgia [None]

NARRATIVE: CASE EVENT DATE: 20190625
